FAERS Safety Report 6108063-2 (Version None)
Quarter: 2009Q1

REPORT INFORMATION
  Report Type: 
  Country: None (occurrence: None)
  Receive Date: 20090304
  Receipt Date: 20080215
  Transmission Date: 20090719
  Serious: Yes (Other)
  Sender: FDA-Public Use
  Company Number: US-000285

PATIENT
  Age: 55 Year
  Sex: Female
  Weight: 68.6 kg

DRUGS (16)
  1. ISOVUE-300 [Suspect]
     Indication: ANGINA UNSTABLE
     Dosage: X / DAY INTRA-ARTERIAL
     Route: 013
     Dates: start: 20071219, end: 20071219
  2. ISOVUE-300 [Suspect]
     Indication: ELECTROCARDIOGRAM ST-T CHANGE
     Dosage: X / DAY INTRA-ARTERIAL
     Route: 013
     Dates: start: 20071219, end: 20071219
  3. ANGIOMAX [Suspect]
     Indication: ANGINA UNSTABLE
     Dosage: 52.5MG QD INVRAVENOUS BOLUS X/DAY INTRAVENOUS
     Route: 040
  4. ANGIOMAX [Suspect]
     Indication: ELECTROCARDIOGRAM ST-T CHANGE
     Dosage: 52.5MG QD INVRAVENOUS BOLUS X/DAY INTRAVENOUS
     Route: 040
  5. ..... [Concomitant]
  6. NORVASC [Concomitant]
  7. HEPARIN [Concomitant]
  8. PROTONIX [Concomitant]
  9. ANCEF [Concomitant]
  10. ZOFRAN [Concomitant]
  11. LIPITOR [Concomitant]
  12. LOPRESSOR [Concomitant]
  13. PLAVIX [Concomitant]
  14. COLACE (DOCUSATE SODIUM) [Concomitant]
  15. ASPIRIN [Concomitant]
  16. NITROGLYCERIN [Concomitant]

REACTIONS (6)
  - CONTRAST MEDIA ALLERGY [None]
  - DRUG HYPERSENSITIVITY [None]
  - ELECTROCARDIOGRAM ST SEGMENT DEPRESSION [None]
  - HYPOTENSION [None]
  - MUSCLE SPASMS [None]
  - TACHYCARDIA [None]
